FAERS Safety Report 6537783-0 (Version None)
Quarter: 2010Q1

REPORT INFORMATION
  Report Type: 
  Country: None (occurrence: None)
  Receive Date: 20100114
  Receipt Date: 20100104
  Transmission Date: 20100710
  Serious: Yes (Hospitalization)
  Sender: FDA-Public Use
  Company Number: ES-PFIZER INC-2009210486

PATIENT
  Age: 68 Year
  Sex: Male

DRUGS (8)
  1. PREDNISONE [Suspect]
     Indication: PROSTATE CANCER
     Dosage: 5 MG, 2X/DAY
     Route: 048
     Dates: start: 20090303, end: 20090811
  2. BLINDED *NO SUBJECT DRUG [Suspect]
     Indication: PROSTATE CANCER
     Dosage: 37.5 MG, 1X/DAY
     Route: 048
     Dates: start: 20090303, end: 20090811
  3. BLINDED *PLACEBO [Suspect]
     Indication: PROSTATE CANCER
     Dosage: 37.5 MG, 1X/DAY
     Route: 048
     Dates: start: 20090303, end: 20090811
  4. BLINDED SUNITINIB MALATE [Suspect]
     Indication: PROSTATE CANCER
     Dosage: 37.5 MG, 1X/DAY
     Route: 048
     Dates: start: 20090303, end: 20090811
  5. PROCRIN [Concomitant]
     Dosage: UNK
     Dates: start: 20080808
  6. OMEPRAZOL [Concomitant]
     Dosage: UNK
     Dates: start: 20080808
  7. ATACAND [Concomitant]
     Dosage: UNK
     Dates: start: 20080808
  8. EFFERALGAN [Concomitant]
     Dosage: UNK
     Dates: start: 20080808

REACTIONS (1)
  - DRUG TOXICITY [None]
